FAERS Safety Report 16562279 (Version 1)
Quarter: 2019Q3

REPORT INFORMATION
  Report Type: Report from Study
  Country: US (occurrence: US)
  Receive Date: 20190711
  Receipt Date: 20190711
  Transmission Date: 20191004
  Serious: Yes (Other)
  Sender: FDA-Public Use
  Company Number: US-ACTELION-A-US2019-192738

PATIENT
  Age: 60 Year
  Sex: Female

DRUGS (21)
  1. FLUOROURACIL. [Concomitant]
     Active Substance: FLUOROURACIL
     Route: 061
  2. ALBUTEROL HFA [Concomitant]
     Active Substance: ALBUTEROL SULFATE
  3. OMEPRAZOLE. [Concomitant]
     Active Substance: OMEPRAZOLE
  4. MS CONTIN [Concomitant]
     Active Substance: MORPHINE SULFATE
  5. OPSUMIT [Suspect]
     Active Substance: MACITENTAN
     Indication: PULMONARY HYPERTENSION
     Dosage: 10 MG, QD
     Route: 048
     Dates: start: 201803
  6. HYDROXYCHLOROQUINE [Concomitant]
     Active Substance: HYDROXYCHLOROQUINE
  7. SPIRONOLACTONE. [Concomitant]
     Active Substance: SPIRONOLACTONE
  8. NALOXONE [Concomitant]
     Active Substance: NALOXONE
  9. RANITIDINE. [Concomitant]
     Active Substance: RANITIDINE
  10. TRETINOIN. [Concomitant]
     Active Substance: TRETINOIN
     Route: 061
  11. METOPROLOL. [Concomitant]
     Active Substance: METOPROLOL
  12. COLCHICINE. [Concomitant]
     Active Substance: COLCHICINE
  13. SILDENAFIL. [Concomitant]
     Active Substance: SILDENAFIL
  14. FUROSEMIDE. [Concomitant]
     Active Substance: FUROSEMIDE
  15. LORAZEPAM. [Concomitant]
     Active Substance: LORAZEPAM
  16. GABAPENTIN. [Concomitant]
     Active Substance: GABAPENTIN
  17. DULERA [Concomitant]
     Active Substance: FORMOTEROL FUMARATE DIHYDRATE\MOMETASONE FUROATE
  18. PERCOCET [Concomitant]
     Active Substance: ACETAMINOPHEN\OXYCODONE HYDROCHLORIDE
  19. CELLCEPT [Concomitant]
     Active Substance: MYCOPHENOLATE MOFETIL\MYCOPHENOLATE MOFETIL HYDROCHLORIDE
  20. ALBUTEROL. [Concomitant]
     Active Substance: ALBUTEROL
  21. METHOCARBAMOL. [Concomitant]
     Active Substance: METHOCARBAMOL

REACTIONS (2)
  - Skin laceration [Recovering/Resolving]
  - Fall [Recovering/Resolving]

NARRATIVE: CASE EVENT DATE: 20190616
